FAERS Safety Report 5323264-9 (Version None)
Quarter: 2007Q2

REPORT INFORMATION
  Report Type: 
  Country: None (occurrence: None)
  Receive Date: 20070220
  Receipt Date: 20061130
  Transmission Date: 20071010
  Serious: No
  Sender: FDA-Public Use
  Company Number: WAES 0612USA00395

PATIENT
  Age: 52 Year
  Sex: Male

DRUGS (8)
  1. JANUVIA [Suspect]
     Indication: GLYCOSYLATED HAEMOGLOBIN INCREASED
     Dosage: 100 MG/DAILY/PO
     Route: 048
     Dates: start: 20061101
  2. ACTOS [Concomitant]
  3. HYZAAR [Concomitant]
  4. LANTUS [Concomitant]
  5. LOTREL [Concomitant]
  6. ZOCOR [Concomitant]
  7. ASPIRIN [Concomitant]
  8. METFORMIN HCL [Concomitant]

REACTIONS (1)
  - DRY MOUTH [None]
